FAERS Safety Report 15621792 (Version 1)
Quarter: 2018Q4

REPORT INFORMATION
  Report Type: Spontaneous
  Country: US (occurrence: US)
  Receive Date: 20181115
  Receipt Date: 20181115
  Transmission Date: 20190205
  Serious: Yes (Other)
  Sender: FDA-Public Use
  Company Number: CN-ASTRAZENECA-2018SF49381

PATIENT
  Age: 86 Year
  Sex: Female
  Weight: 61 kg

DRUGS (1)
  1. NEXIUM [Suspect]
     Active Substance: ESOMEPRAZOLE MAGNESIUM
     Dosage: UNKNOWN DOSE AND FREQUENCY
     Route: 065
     Dates: start: 2002

REACTIONS (2)
  - Haematemesis [Unknown]
  - Ulcer [Unknown]

NARRATIVE: CASE EVENT DATE: 2002
